FAERS Safety Report 15489306 (Version 1)
Quarter: 2018Q4

REPORT INFORMATION
  Report Type: Spontaneous
  Country: US (occurrence: US)
  Receive Date: 20181004
  Receipt Date: 20181004
  Transmission Date: 20190205
  Serious: Yes (Hospitalization)
  Sender: FDA-Public Use
  Company Number: None

PATIENT
  Age: 22 Year
  Sex: Female

DRUGS (1)
  1. SYMDEKO [Suspect]
     Active Substance: IVACAFTOR\TEZACAFTOR
     Dates: start: 20180925, end: 20180929

REACTIONS (5)
  - Asthenia [None]
  - Dizziness [None]
  - Pyrexia [None]
  - Lung infection [None]
  - Ocular icterus [None]

NARRATIVE: CASE EVENT DATE: 20181002
